FAERS Safety Report 5707267-8 (Version None)
Quarter: 2008Q2

REPORT INFORMATION
  Report Type: 
  Country: None (occurrence: None)
  Receive Date: 20080414
  Receipt Date: 20080414
  Transmission Date: 20081010
  Serious: No
  Sender: FDA-Public Use
  Company Number: None

PATIENT
  Age: 60 Year
  Sex: Female
  Weight: 55.3388 kg

DRUGS (1)
  1. FOSAMAX [Suspect]
     Indication: OSTEOPENIA
     Dosage: 70MG 1 PER WEEK PO
     Route: 048
     Dates: start: 20080115, end: 20080406

REACTIONS (6)
  - ARTHRALGIA [None]
  - BONE PAIN [None]
  - DISCOMFORT [None]
  - EXERCISE TOLERANCE DECREASED [None]
  - GAIT DISTURBANCE [None]
  - PAIN IN JAW [None]
